FAERS Safety Report 4580322-4 (Version None)
Quarter: 2005Q1

REPORT INFORMATION
  Report Type: 
  Country: None (occurrence: None)
  Receive Date: 20050214
  Receipt Date: 20031015
  Transmission Date: 20050727
  Serious: No
  Sender: FDA-Public Use
  Company Number: US-GLAXOSMITHKLINE-A0430455A

PATIENT
  Age: 23 Year
  Sex: Male
  Weight: 90.9 kg

DRUGS (3)
  1. LAMICTAL [Suspect]
     Indication: BIPOLAR DISORDER
     Dosage: 100MG PER DAY
     Route: 048
  2. DEPAKOTE [Suspect]
     Dosage: 1000MG AT NIGHT
     Dates: end: 20031201
  3. ZOLOFT [Concomitant]
     Dosage: 100MG IN THE MORNING

REACTIONS (3)
  - DYSPAREUNIA [None]
  - ERECTILE DYSFUNCTION [None]
  - PENILE PAIN [None]
